FAERS Safety Report 10096743 (Version 1)
Quarter: 2014Q2

REPORT INFORMATION
  Report Type: Spontaneous
  Country: US (occurrence: US)
  Receive Date: 20140422
  Receipt Date: 20140422
  Transmission Date: 20141212
  Serious: No
  Sender: FDA-Public Use
  Company Number: US-PFIZER INC-2014108526

PATIENT
  Sex: Male

DRUGS (3)
  1. CHANTIX [Suspect]
     Indication: SMOKING CESSATION THERAPY
     Dosage: UNK
     Dates: start: 2009
  2. CHANTIX [Suspect]
     Dosage: 0.5 MG (1/2 OF 1 MG TABLET) DAILY
  3. CHANTIX [Suspect]
     Dosage: 1 MG, DAILY

REACTIONS (3)
  - Abnormal dreams [Recovered/Resolved]
  - Aggression [Unknown]
  - Epigastric discomfort [Unknown]
